FAERS Safety Report 6152181-X (Version None)
Quarter: 2009Q2

REPORT INFORMATION
  Report Type: 
  Country: None (occurrence: None)
  Receive Date: 20090410
  Receipt Date: 20090223
  Transmission Date: 20091009
  Serious: Yes (Other)
  Sender: FDA-Public Use
  Company Number: BW-GILEAD-2009-0021121

PATIENT
  Sex: Female

DRUGS (3)
  1. TRUVADA [Suspect]
     Indication: HIV INFECTION
     Dates: start: 20061030, end: 20080215
  2. NEVIRAPINE [Concomitant]
     Dates: start: 20061030
  3. COMBIVIR [Concomitant]
     Dates: start: 20080215

REACTIONS (1)
  - STILLBIRTH [None]
